FAERS Safety Report 11274772 (Version 4)
Quarter: 2015Q3

REPORT INFORMATION
  Report Type: Spontaneous
  Country: JP (occurrence: JP)
  Receive Date: 20150716
  Receipt Date: 20150817
  Transmission Date: 20151125
  Serious: Yes (Hospitalization, Other)
  Sender: FDA-Public Use
  Company Number: JP-BRISTOL-MYERS SQUIBB COMPANY-BMS-2015-046597

PATIENT
  Age: 78 Year
  Sex: Male
  Weight: 53 kg

DRUGS (11)
  1. ELIQUIS [Suspect]
     Active Substance: APIXABAN
     Indication: THROMBOSIS PROPHYLAXIS
  2. VITAMEDIN                          /00176001/ [Concomitant]
     Indication: PROPHYLAXIS
     Dosage: UNK, TID
     Route: 048
     Dates: start: 201307
  3. RIFAMPICIN [Concomitant]
     Active Substance: RIFAMPIN
     Indication: ATYPICAL MYCOBACTERIUM TEST POSITIVE
     Dosage: 300 MG, QD
     Route: 048
     Dates: start: 201304
  4. ISODINE [Concomitant]
     Active Substance: POVIDONE-IODINE
     Indication: ATYPICAL MYCOBACTERIUM TEST POSITIVE
     Dosage: 6 DF, QD
     Route: 065
     Dates: start: 201310
  5. LYRICA [Concomitant]
     Active Substance: PREGABALIN
     Indication: PROCEDURAL PAIN
     Dosage: 50 MG, BID
     Route: 048
     Dates: start: 20150508, end: 20150626
  6. ELIQUIS [Suspect]
     Active Substance: APIXABAN
     Indication: CEREBROVASCULAR ACCIDENT PROPHYLAXIS
     Dosage: 5 MG, BID
     Route: 048
     Dates: start: 20150610, end: 20150626
  7. KLARICID                           /00984601/ [Concomitant]
     Active Substance: CLARITHROMYCIN
     Indication: ATYPICAL MYCOBACTERIUM TEST POSITIVE
     Dosage: 600 MG, QD
     Route: 048
     Dates: start: 201304
  8. EBUTOL                             /00022301/ [Concomitant]
     Indication: ATYPICAL MYCOBACTERIUM TEST POSITIVE
     Dosage: 500 MG, QD
     Route: 048
     Dates: start: 201304
  9. ALLEGRA [Concomitant]
     Active Substance: FEXOFENADINE HYDROCHLORIDE
     Indication: PROPHYLAXIS
     Dosage: 120 MG, BID
     Route: 048
     Dates: start: 201305
  10. HARNAL [Concomitant]
     Active Substance: TAMSULOSIN HYDROCHLORIDE
     Indication: BENIGN PROSTATIC HYPERPLASIA
     Dosage: 0.2 MG, QD
     Route: 048
     Dates: start: 2013
  11. HARNAL [Concomitant]
     Active Substance: TAMSULOSIN HYDROCHLORIDE
     Indication: PRODUCT USED FOR UNKNOWN INDICATION
     Route: 065

REACTIONS (1)
  - Idiopathic pulmonary fibrosis [Recovering/Resolving]

NARRATIVE: CASE EVENT DATE: 20150626
